FAERS Safety Report 25233719 (Version 1)
Quarter: 2025Q2

REPORT INFORMATION
  Report Type: Report from Study
  Country: US (occurrence: US)
  Receive Date: 20250424
  Receipt Date: 20250424
  Transmission Date: 20250717
  Serious: Yes (Death, Hospitalization)
  Sender: INSMED
  Company Number: US-INSMED-2023-01502-USAA

PATIENT
  Sex: Female

DRUGS (2)
  1. ARIKAYCE [Suspect]
     Active Substance: AMIKACIN
     Indication: Mycobacterium avium complex infection
     Dosage: 590 MILLIGRAM, QD
     Route: 055
     Dates: start: 20230320, end: 2023
  2. ARIKAYCE [Suspect]
     Active Substance: AMIKACIN
     Dosage: 590 MILLIGRAM, QD
     Route: 055
     Dates: start: 20241218

REACTIONS (14)
  - Death [Fatal]
  - Hip fracture [Unknown]
  - Eye disorder [Unknown]
  - Condition aggravated [Unknown]
  - Eye allergy [Unknown]
  - Osteoporosis [Unknown]
  - Rehabilitation therapy [Not Recovered/Not Resolved]
  - Throat irritation [Not Recovered/Not Resolved]
  - Dysphonia [Not Recovered/Not Resolved]
  - Cough [Not Recovered/Not Resolved]
  - Headache [Recovered/Resolved]
  - Headache [Not Recovered/Not Resolved]
  - Hypersensitivity [Unknown]
  - Therapy interrupted [Unknown]

NARRATIVE: CASE EVENT DATE: 20230101
